FAERS Safety Report 10666300 (Version 13)
Quarter: 2016Q2

REPORT INFORMATION
  Report Type: Report from Study
  Country: FI (occurrence: FI)
  Receive Date: 20141220
  Receipt Date: 20160518
  Transmission Date: 20160815
  Serious: Yes (Hospitalization, Other)
  Sender: FDA-Public Use
  Company Number: FI-ROCHE-1497431

PATIENT
  Age: 66 Year
  Sex: Female
  Weight: 64.6 kg

DRUGS (27)
  1. PARATABS [Concomitant]
     Route: 048
     Dates: start: 20150420, end: 20150420
  2. OBINUTUZUMAB [Suspect]
     Active Substance: OBINUTUZUMAB
     Indication: CHRONIC LYMPHOCYTIC LEUKAEMIA
     Dosage: C1 D1 TEMPORARILY INTERRUPTED DUE TO INFUSON RELATED REACTION
     Route: 042
     Dates: start: 20141124, end: 20141124
  3. OBINUTUZUMAB [Suspect]
     Active Substance: OBINUTUZUMAB
     Dosage: C1 D15
     Route: 042
     Dates: start: 20141209, end: 20141209
  4. PARATABS [Concomitant]
     Route: 048
     Dates: start: 20141125, end: 20141125
  5. PARATABS [Concomitant]
     Route: 048
     Dates: start: 20141222, end: 20141222
  6. HISTEC [Concomitant]
     Route: 048
     Dates: start: 20150320, end: 20150320
  7. HISTEC [Concomitant]
     Route: 048
     Dates: start: 20150420, end: 20150420
  8. ZOFRAN [Concomitant]
     Active Substance: ONDANSETRON HYDROCHLORIDE
     Indication: PROPHYLAXIS
     Route: 048
     Dates: start: 20141125, end: 20141125
  9. OBINUTUZUMAB [Suspect]
     Active Substance: OBINUTUZUMAB
     Dosage: C1 D8
     Route: 042
     Dates: start: 20141202, end: 20141202
  10. PARATABS [Concomitant]
     Route: 048
     Dates: start: 20150518, end: 20150518
  11. HISTEC [Concomitant]
     Route: 048
     Dates: start: 20141125, end: 20141125
  12. HISTEC [Concomitant]
     Route: 048
     Dates: start: 20141222, end: 20141222
  13. PARATABS [Concomitant]
     Indication: PROPHYLAXIS
     Route: 048
     Dates: start: 20141124, end: 20141124
  14. HISTEC [Concomitant]
     Route: 048
     Dates: start: 20141209, end: 20141209
  15. HISTEC [Concomitant]
     Route: 048
     Dates: start: 20141202, end: 20141202
  16. HISTEC [Concomitant]
     Route: 048
     Dates: start: 20150518, end: 20150518
  17. OBINUTUZUMAB [Suspect]
     Active Substance: OBINUTUZUMAB
     Route: 042
     Dates: start: 20141125, end: 20141125
  18. PARATABS [Concomitant]
     Route: 048
     Dates: start: 20150320, end: 20150320
  19. PARATABS [Concomitant]
     Route: 048
     Dates: start: 20150213, end: 20150213
  20. HISTEC [Concomitant]
     Route: 048
     Dates: start: 20150213, end: 20150213
  21. VALTREX [Concomitant]
     Active Substance: VALACYCLOVIR HYDROCHLORIDE
     Route: 048
     Dates: start: 20141128, end: 20150613
  22. OBINUTUZUMAB [Suspect]
     Active Substance: OBINUTUZUMAB
     Dosage: C2 D1
     Route: 042
     Dates: start: 20141222
  23. PARATABS [Concomitant]
     Route: 048
     Dates: start: 20141209, end: 20141209
  24. PARATABS [Concomitant]
     Route: 048
     Dates: start: 20141202, end: 20141202
  25. HISTEC [Concomitant]
     Indication: PROPHYLAXIS
     Route: 048
     Dates: start: 20141124, end: 20141124
  26. COTRIM D.S. [Concomitant]
     Active Substance: SULFAMETHOXAZOLE\TRIMETHOPRIM
     Dosage: DAILY DOSE: 160/800MG
     Route: 048
     Dates: start: 20141128, end: 20150613
  27. ZYLORIC [Concomitant]
     Active Substance: ALLOPURINOL
     Route: 048
     Dates: start: 20141124, end: 20150320

REACTIONS (3)
  - Neutropenia [Recovered/Resolved]
  - Cytokine release syndrome [Recovered/Resolved]
  - Febrile neutropenia [Recovered/Resolved]

NARRATIVE: CASE EVENT DATE: 20141124
